FAERS Safety Report 15036306 (Version 1)
Quarter: 2018Q2

REPORT INFORMATION
  Report Type: Spontaneous
  Country: US (occurrence: US)
  Receive Date: 20180530
  Receipt Date: 20180530
  Transmission Date: 20180711
  Serious: Yes (Other)
  Sender: FDA-Public Use
  Company Number: None

PATIENT
  Age: 32 Year
  Sex: Female
  Weight: 57.61 kg

DRUGS (1)
  1. BUPRENORPHINE 8/2 MG TABS [Suspect]
     Active Substance: BUPRENORPHINE
     Indication: DRUG DEPENDENCE
     Route: 060

REACTIONS (4)
  - Malaise [None]
  - Product substitution issue [None]
  - Drug ineffective [None]
  - Withdrawal syndrome [None]
